FAERS Safety Report 4929604-4 (Version None)
Quarter: 2006Q1

REPORT INFORMATION
  Report Type: 
  Country: None (occurrence: None)
  Receive Date: 20060224
  Receipt Date: 20060213
  Transmission Date: 20060701
  Serious: Yes (Hospitalization, Other)
  Sender: FDA-Public Use
  Company Number: 2005159708

PATIENT
  Age: 79 Year
  Sex: Female
  Weight: 48.0813 kg

DRUGS (12)
  1. NEURONTIN [Suspect]
     Indication: PAIN
     Dosage: 2400 MG (800 MG, 3 IN 1 D)
     Dates: start: 20001114, end: 20051020
  2. LYRICA [Suspect]
     Indication: BACK PAIN
     Dosage: 150 MG (75 MG, 2 IN 1 D)
     Dates: start: 20051020, end: 20051110
  3. WARFARIN SODIUM [Suspect]
     Indication: ATRIAL FIBRILLATION
     Dosage: 3MG TIW AND 4MG QIW (1 IN 1 D)
     Dates: start: 19980101
  4. FOSAMAX [Concomitant]
  5. ACTONEL [Concomitant]
  6. LORTAB [Concomitant]
  7. ALTACE [Concomitant]
  8. TOPROL-XL [Concomitant]
  9. CYMBALTA [Concomitant]
  10. PREMARIN [Concomitant]
  11. LEVOXYL [Concomitant]
  12. LANOXIN [Concomitant]

REACTIONS (9)
  - ANTIBODY TEST POSITIVE [None]
  - ERYTHEMA [None]
  - HAEMATOCRIT DECREASED [None]
  - HAEMOGLOBIN DECREASED [None]
  - RASH [None]
  - THROMBOCYTOPENIA [None]
  - THYROID DISORDER [None]
  - WHITE BLOOD CELL COUNT DECREASED [None]
  - WHITE BLOOD CELL COUNT INCREASED [None]
